FAERS Safety Report 9599705 (Version 2)
Quarter: 2013Q4

REPORT INFORMATION
  Report Type: Spontaneous
  Country: US (occurrence: US)
  Receive Date: 20131004
  Receipt Date: 20131004
  Transmission Date: 20140711
  Serious: No
  Sender: FDA-Public Use
  Company Number: US-AMGEN-USASP2013025140

PATIENT
  Age: 63 Year
  Sex: Female
  Weight: 62.59 kg

DRUGS (3)
  1. ENBREL [Suspect]
     Indication: RHEUMATOID ARTHRITIS
     Dosage: 50 MG, QWK
     Dates: start: 20130208, end: 20130208
  2. CALCIUM [Concomitant]
     Dosage: UNK
  3. VITAMIN D                          /00107901/ [Concomitant]
     Dosage: UNK

REACTIONS (1)
  - Urticaria [Unknown]
